FAERS Safety Report 14092498 (Version 1)
Quarter: 2017Q4

REPORT INFORMATION
  Report Type: Spontaneous
  Country: IN (occurrence: IN)
  Receive Date: 20171016
  Receipt Date: 20171016
  Transmission Date: 20180321
  Serious: Yes (Other)
  Sender: FDA-Public Use
  Company Number: IN-ALEMBIC PHARMACUETICALS LIMITED-2017SCAL000814

PATIENT

DRUGS (5)
  1. CARBAMAZEPINE. [Concomitant]
     Active Substance: CARBAMAZEPINE
     Indication: STATUS EPILEPTICUS
     Dosage: 200 MG, BID
  2. LACOSAMIDE. [Suspect]
     Active Substance: LACOSAMIDE
     Indication: EPILEPSY
     Dosage: 200 MG, (15 MIN) AS LOADING DOSE
     Route: 042
  3. LACOSAMIDE. [Interacting]
     Active Substance: LACOSAMIDE
     Dosage: 200 MG, BID
     Route: 042
  4. ESCITALOPRAM [Concomitant]
     Active Substance: ESCITALOPRAM OXALATE
     Indication: STATUS EPILEPTICUS
     Dosage: 0.5 MG, BID
  5. VALPROATE [Interacting]
     Active Substance: VALPROIC ACID
     Indication: STATUS EPILEPTICUS
     Dosage: 400 MG, BID

REACTIONS (3)
  - Toxicity to various agents [Recovered/Resolved]
  - Drug interaction [Unknown]
  - Hyperammonaemic encephalopathy [Recovered/Resolved]
